FAERS Safety Report 14937828 (Version 1)
Quarter: 2018Q2

REPORT INFORMATION
  Report Type: Spontaneous
  Country: US (occurrence: US)
  Receive Date: 20180507
  Receipt Date: 20180507
  Transmission Date: 20180711
  Serious: No
  Sender: FDA-Public Use
  Company Number: None

PATIENT
  Age: 65 Year
  Sex: Male
  Weight: 101.25 kg

DRUGS (3)
  1. ATOROVASATIN [Concomitant]
  2. LISINOPRIL. [Concomitant]
     Active Substance: LISINOPRIL
  3. ZOLPIDEM TARTRATE TABS 10MG [Suspect]
     Active Substance: ZOLPIDEM TARTRATE
     Indication: SLEEP DISORDER
     Dosage: ?          QUANTITY:1 DF DOSAGE FORM;?
     Route: 048
     Dates: start: 20180423, end: 20180425

REACTIONS (6)
  - Agitation [None]
  - Drug ineffective [None]
  - Gait disturbance [None]
  - Arthralgia [None]
  - Product substitution issue [None]
  - Restless legs syndrome [None]

NARRATIVE: CASE EVENT DATE: 20180423
